FAERS Safety Report 8572653-8 (Version None)
Quarter: 2012Q3

REPORT INFORMATION
  Report Type: 
  Country: None (occurrence: None)
  Receive Date: 20120806
  Receipt Date: 20120501
  Transmission Date: 20120928
  Serious: No
  Sender: FDA-Public Use
  Company Number: US-009507513-2012SP024744

PATIENT

DRUGS (4)
  1. VITAMINS (UNSPECIFIED) [Concomitant]
     Indication: PRODUCT USED FOR UNKNOWN INDICATION
     Dosage: UNK UNK, UNKNOWN
  2. ASPIRIN [Concomitant]
     Indication: HYPERTENSION
     Dosage: 81 MG, UNKNOWN
  3. LOTRIMIN AF [Suspect]
     Indication: TINEA CRURIS
     Dosage: 3 DF, UNKNOWN
     Route: 061
     Dates: start: 20120324
  4. LISINOPRIL [Concomitant]
     Indication: HYPERTENSION
     Dosage: 10 MG, UNKNOWN

REACTIONS (3)
  - BURNING SENSATION [None]
  - RASH GENERALISED [None]
  - NODULE [None]
